FAERS Safety Report 8470177-X (Version None)
Quarter: 2012Q2

REPORT INFORMATION
  Report Type: 
  Country: None (occurrence: None)
  Receive Date: 20120621
  Receipt Date: 20120621
  Transmission Date: 20120825
  Serious: Yes (Other)
  Sender: FDA-Public Use
  Company Number: None

PATIENT
  Age: 67 Year
  Sex: Male

DRUGS (1)
  1. ERIVEDGE [Suspect]
     Indication: BASAL CELL CARCINOMA
     Dosage: ONE CAPSULE ONCE DAILY PO
     Route: 048
     Dates: start: 20120312, end: 20120619

REACTIONS (2)
  - SWOLLEN TONGUE [None]
  - ANGIOEDEMA [None]
